FAERS Safety Report 8531882-X (Version None)
Quarter: 2012Q3

REPORT INFORMATION
  Report Type: 
  Country: None (occurrence: None)
  Receive Date: 20120723
  Receipt Date: 20120712
  Transmission Date: 20120928
  Serious: Yes (Hospitalization)
  Sender: FDA-Public Use
  Company Number: US-MYLANLABS-2012S1012718

PATIENT
  Age: 71 Year
  Sex: Female

DRUGS (10)
  1. LANTUS [Concomitant]
     Indication: DIABETES MELLITUS
  2. AMLODIPINE [Concomitant]
     Indication: BLOOD PRESSURE INCREASED
  3. HYDROCHLOROTHIAZIDE [Concomitant]
     Dates: end: 20120606
  4. OMEGA III [Concomitant]
  5. GEMFIBROZIL [Concomitant]
  6. OMEPRAZOLE [Concomitant]
     Indication: GASTROOESOPHAGEAL REFLUX DISEASE
  7. NOVOLOG [Concomitant]
  8. LOVASTATIN [Suspect]
     Indication: BLOOD CHOLESTEROL INCREASED
     Route: 048
     Dates: start: 20120301, end: 20120606
  9. DIOVAN [Concomitant]
     Indication: BLOOD PRESSURE INCREASED
     Dates: end: 20120606
  10. LOVASTATIN [Suspect]
     Route: 048
     Dates: end: 20120301

REACTIONS (7)
  - RENAL FAILURE [None]
  - NAUSEA [None]
  - PAIN IN EXTREMITY [None]
  - FATIGUE [None]
  - BACK PAIN [None]
  - ASTHENIA [None]
  - DYSPNOEA [None]
